FAERS Safety Report 5531103-6 (Version None)
Quarter: 2007Q4

REPORT INFORMATION
  Report Type: 
  Country: None (occurrence: None)
  Receive Date: 20071130
  Receipt Date: 20071127
  Transmission Date: 20080405
  Serious: Yes (Other)
  Sender: FDA-Public Use
  Company Number: US-BOEHRINGER INGELHEIM PHARMACEUTICALS, INC.-2007-DE-06978GD

PATIENT
  Age: 44 Year
  Sex: Female

DRUGS (3)
  1. DIPYRIDAMOLE AMPOULE [Suspect]
     Indication: CARDIAC STRESS TEST
     Route: 042
  2. TECHNETIUM 99M SESTAMIBI [Concomitant]
     Indication: CARDIAC STRESS TEST
  3. INSULIN [Concomitant]
     Indication: TYPE 1 DIABETES MELLITUS

REACTIONS (7)
  - BLOOD PRESSURE DECREASED [None]
  - CHEST PAIN [None]
  - CORONARY ARTERY BYPASS [None]
  - ELECTROCARDIOGRAM ST SEGMENT DEPRESSION [None]
  - ELECTROCARDIOGRAM ST SEGMENT ELEVATION [None]
  - PAIN IN EXTREMITY [None]
  - STEAL SYNDROME [None]
